FAERS Safety Report 13937600 (Version 2)
Quarter: 2017Q4

REPORT INFORMATION
  Report Type: Report from Study
  Country: US (occurrence: US)
  Receive Date: 20170905
  Receipt Date: 20171222
  Transmission Date: 20180320
  Serious: No
  Sender: FDA-Public Use
  Company Number: PHEH2017US027966

PATIENT
  Sex: Female

DRUGS (2)
  1. COSENTYX [Suspect]
     Active Substance: SECUKINUMAB
     Indication: PSORIASIS
     Dosage: 300 MG, QW
     Route: 058
  2. COSENTYX [Suspect]
     Active Substance: SECUKINUMAB
     Dosage: 150 MG, QMO
     Route: 058

REACTIONS (7)
  - Influenza [Recovering/Resolving]
  - Chills [Unknown]
  - Psoriasis [Unknown]
  - Nasopharyngitis [Unknown]
  - Medical device discomfort [Unknown]
  - Injection site pain [Recovered/Resolved]
  - Pain [Unknown]
